FAERS Safety Report 8402697-8 (Version None)
Quarter: 2012Q2

REPORT INFORMATION
  Report Type: 
  Country: None (occurrence: None)
  Receive Date: 20120601
  Receipt Date: 20120207
  Transmission Date: 20120825
  Serious: Yes (Hospitalization)
  Sender: FDA-Public Use
  Company Number: US-ROCHE-412466

PATIENT
  Age: 60 Year
  Sex: Female
  Weight: 79.7 kg

DRUGS (3)
  1. TARCEVA [Suspect]
     Indication: BREAST CANCER
     Route: 048
  2. PACLITAXEL [Suspect]
     Indication: BREAST CANCER
     Route: 042
  3. HERCEPTIN [Suspect]
     Indication: BREAST CANCER
     Route: 042

REACTIONS (4)
  - INFECTION [None]
  - DEHYDRATION [None]
  - DIARRHOEA [None]
  - FATIGUE [None]
